FAERS Safety Report 8522709-0 (Version None)
Quarter: 2012Q3

REPORT INFORMATION
  Report Type: 
  Country: None (occurrence: None)
  Receive Date: 20120719
  Receipt Date: 20120402
  Transmission Date: 20120928
  Serious: Yes (Hospitalization, Other)
  Sender: FDA-Public Use
  Company Number: US-VIIV HEALTHCARE LIMITED-B0796214A

PATIENT
  Age: 51 Year
  Sex: Male
  Weight: 82 kg

DRUGS (13)
  1. SUSTIVA [Concomitant]
     Dosage: 600MG PER DAY
     Route: 048
     Dates: end: 20120214
  2. KALETRA [Concomitant]
     Dosage: 3TAB TWICE PER DAY
     Route: 048
     Dates: end: 20120214
  3. VIREAD [Concomitant]
     Dosage: 300MG PER DAY
     Route: 048
     Dates: end: 20120214
  4. NORVIR [Concomitant]
     Indication: HIV INFECTION
     Dates: start: 20120429
  5. MULTI-VITAMIN [Concomitant]
     Dosage: 1CAP PER DAY
     Route: 048
  6. VACCINE (NON-GSK) [Suspect]
     Route: 030
     Dates: start: 20120109
  7. SELZENTRY [Suspect]
     Indication: HIV INFECTION
     Dosage: 150MG TWICE PER DAY
     Route: 048
     Dates: start: 20110525
  8. VACCINE (NON-GSK) [Suspect]
     Indication: IMMUNISATION
     Dosage: 4MGDL MONTHLY
     Route: 030
     Dates: start: 20110720
  9. ANDRODERM [Concomitant]
     Dosage: 5MG PER DAY
     Route: 061
  10. IBUPROFEN [Concomitant]
     Indication: PAIN
     Dosage: 400MG AS REQUIRED
     Route: 048
  11. DARUNAVIR ETHANOLATE [Concomitant]
     Indication: HIV INFECTION
     Dates: start: 20120429
  12. ABACAVIR [Suspect]
     Indication: HIV INFECTION
     Route: 065
     Dates: start: 20120429
  13. ISENTRESS [Suspect]
     Indication: HIV INFECTION
     Dosage: 400MG TWICE PER DAY
     Route: 048
     Dates: start: 20110525

REACTIONS (3)
  - BACTERAEMIA [None]
  - RENAL FAILURE CHRONIC [None]
  - DEEP VEIN THROMBOSIS [None]
